FAERS Safety Report 10390102 (Version 1)
Quarter: 2014Q1

REPORT INFORMATION
  Report Type: Spontaneous
  Country: US (occurrence: None)
  Receive Date: 20140306
  Receipt Date: 20140306
  Transmission Date: 20141002
  Serious: Yes (Other)
  Sender: FDA-Public Use
  Company Number: 163-21880-13012117

PATIENT
  Age: 57 Year
  Sex: Female

DRUGS (2)
  1. REVLIMID [Suspect]
     Indication: PLASMA CELL MYELOMA
     Route: 048
     Dates: start: 20101225
  2. REVLIMID [Suspect]
     Indication: RENAL TRANSPLANT
     Route: 048
     Dates: start: 20101225

REACTIONS (3)
  - Disorientation [None]
  - Fall [None]
  - Diarrhoea [None]
